FAERS Safety Report 14448677 (Version 2)
Quarter: 2018Q2

REPORT INFORMATION
  Report Type: Spontaneous
  Country: US (occurrence: US)
  Receive Date: 20180126
  Receipt Date: 20180613
  Transmission Date: 20180711
  Serious: Yes (Hospitalization, Other)
  Sender: FDA-Public Use
  Company Number: US-DSJP-DSU-2017-138509

PATIENT

DRUGS (2)
  1. BENICAR [Suspect]
     Active Substance: OLMESARTAN MEDOXOMIL
     Indication: DIABETES MELLITUS
     Dosage: 20 MG, QD
     Route: 048
     Dates: start: 20100726, end: 20170607
  2. BENICAR HCT [Suspect]
     Active Substance: HYDROCHLOROTHIAZIDE\OLMESARTAN MEDOXOMIL
     Indication: DIABETES MELLITUS
     Dosage: 20/12.5 MG, QD
     Route: 048
     Dates: start: 20100726, end: 20170607

REACTIONS (5)
  - Acute kidney injury [Recovered/Resolved]
  - Pancreatitis acute [Recovered/Resolved]
  - Syncope [Unknown]
  - Sprue-like enteropathy [Unknown]
  - Off label use [Unknown]

NARRATIVE: CASE EVENT DATE: 20160224
